FAERS Safety Report 5884445-9 (Version None)
Quarter: 2008Q3

REPORT INFORMATION
  Report Type: 
  Country: None (occurrence: None)
  Receive Date: 20080915
  Receipt Date: 20080901
  Transmission Date: 20090109
  Serious: Yes (Life-Threatening)
  Sender: FDA-Public Use
  Company Number: JP-GENENTECH-267817

PATIENT
  Age: 49 Year
  Sex: Male

DRUGS (12)
  1. RITUXAN [Suspect]
     Indication: DIFFUSE LARGE B-CELL LYMPHOMA
     Dosage: 375 MG/M2, UNK
  2. SULFAMETHOXAZOLE AND TRIMETHOPRIM [Suspect]
     Indication: INFECTION PROPHYLAXIS
     Dosage: 960 MG, 2/WEEK
  3. ETOPOSIDE [Suspect]
     Indication: DIFFUSE LARGE B-CELL LYMPHOMA
     Dosage: 40 MG/M2, UNK
  4. CISPLATIN [Suspect]
     Indication: DIFFUSE LARGE B-CELL LYMPHOMA
     Dosage: 25 MG/M2, UNK
  5. CYTARABINE [Suspect]
     Indication: DIFFUSE LARGE B-CELL LYMPHOMA
     Dosage: 2 G/M2, UNK
  6. METHYLPREDNISOLONE 16MG TAB [Suspect]
     Indication: DIFFUSE LARGE B-CELL LYMPHOMA
  7. WARFARIN SODIUM [Suspect]
     Indication: DEEP VEIN THROMBOSIS
     Dosage: 3 MG, UNK
  8. ZONEGRAN [Concomitant]
     Indication: DRUG USE FOR UNKNOWN INDICATION
  9. NIZATIDINE [Concomitant]
     Indication: DRUG USE FOR UNKNOWN INDICATION
  10. TEPRENONE [Concomitant]
     Indication: DRUG USE FOR UNKNOWN INDICATION
  11. FLUCONAZOLE [Concomitant]
     Indication: DRUG USE FOR UNKNOWN INDICATION
  12. BUCOLOME [Concomitant]
     Indication: DRUG USE FOR UNKNOWN INDICATION
     Dosage: 300 MG, QD

REACTIONS (1)
  - INTERNATIONAL NORMALISED RATIO INCREASED [None]
